FAERS Safety Report 16767518 (Version 1)
Quarter: 2019Q4

REPORT INFORMATION
  Report Type: Spontaneous
  Country: US (occurrence: US)
  Receive Date: 20190903
  Receipt Date: 20190903
  Transmission Date: 20200122
  Serious: Yes (Hospitalization)
  Sender: FDA-Public Use
  Company Number: None

PATIENT
  Age: 57 Year
  Sex: Male

DRUGS (5)
  1. METHOTREXATE INJ 50MG/2ML [Concomitant]
     Active Substance: METHOTREXATE SODIUM
  2. FOLIC ACID 1000MCG TABLET [Concomitant]
  3. GABAPENTIN CAPSULE 400MG [Concomitant]
  4. PANTOPRAZOLE 40MG TABLET [Concomitant]
  5. XELJANZ [Suspect]
     Active Substance: TOFACITINIB CITRATE
     Indication: PSORIATIC ARTHROPATHY
     Route: 048
     Dates: start: 20190711

REACTIONS (1)
  - Hospitalisation [None]

NARRATIVE: CASE EVENT DATE: 20190830
